FAERS Safety Report 4287287-3 (Version None)
Quarter: 2004Q1

REPORT INFORMATION
  Report Type: 
  Country: None (occurrence: None)
  Receive Date: 20040205
  Receipt Date: 20040120
  Transmission Date: 20041129
  Serious: Yes (Death, Life-Threatening, Hospitalization)
  Sender: FDA-Public Use
  Company Number: US_031198992

PATIENT
  Age: 75 Year
  Sex: Male
  Weight: 98 kg

DRUGS (8)
  1. HUMATROPE [Suspect]
     Indication: GROWTH HORMONE DEFICIENCY
     Dosage: 0.4 MG/1 DAY
     Dates: start: 20030131, end: 20031115
  2. METOPROLOL [Concomitant]
  3. LEVOXYL [Concomitant]
  4. TESTOSTERONE [Concomitant]
  5. ENTEX CAP [Concomitant]
  6. NEXIUM [Concomitant]
  7. ZOLOFT [Concomitant]
  8. VIOXX [Concomitant]

REACTIONS (18)
  - ALANINE AMINOTRANSFERASE DECREASED [None]
  - AREFLEXIA [None]
  - BLOOD BICARBONATE DECREASED [None]
  - BLOOD BILIRUBIN INCREASED [None]
  - BLOOD CALCIUM DECREASED [None]
  - BLOOD GLUCOSE INCREASED [None]
  - BLOOD PRESSURE INCREASED [None]
  - CEREBELLAR HAEMORRHAGE [None]
  - CEREBRAL HAEMORRHAGE [None]
  - COMA [None]
  - HAEMATOCRIT INCREASED [None]
  - HAEMOGLOBIN INCREASED [None]
  - INTERNATIONAL NORMALISED RATIO DECREASED [None]
  - MIOSIS [None]
  - PROTHROMBIN TIME PROLONGED [None]
  - PULMONARY OEDEMA [None]
  - PUPILLARY REFLEX IMPAIRED [None]
  - RESPIRATORY DISORDER [None]
